FAERS Safety Report 8327246-4 (Version None)
Quarter: 2012Q2

REPORT INFORMATION
  Report Type: 
  Country: None (occurrence: None)
  Receive Date: 20120501
  Receipt Date: 20120424
  Transmission Date: 20120825
  Serious: Yes (Other)
  Sender: FDA-Public Use
  Company Number: US-AMGEN-USASP2012016690

PATIENT
  Age: 58 Year
  Sex: Female

DRUGS (2)
  1. ENBREL [Suspect]
     Indication: RHEUMATOID ARTHRITIS
     Dosage: 50 MG, QWK
     Dates: start: 20110923, end: 20120306
  2. TREXALL [Concomitant]
     Dosage: 20 MG, UNK
     Dates: start: 20120101

REACTIONS (7)
  - RHEUMATOID ARTHRITIS [None]
  - RENAL FAILURE CHRONIC [None]
  - NAIL DISCOLOURATION [None]
  - STRESS [None]
  - BLOOD TEST ABNORMAL [None]
  - INJECTION SITE HAEMATOMA [None]
  - ANAEMIA [None]
